FAERS Safety Report 5714151-2 (Version None)
Quarter: 2008Q2

REPORT INFORMATION
  Report Type: 
  Country: None (occurrence: None)
  Receive Date: 20080423
  Receipt Date: 20070605
  Transmission Date: 20081010
  Serious: No
  Sender: FDA-Public Use
  Company Number: US-KINGPHARMUSA00001-K200700689

PATIENT

DRUGS (2)
  1. SKELAXIN [Suspect]
     Indication: NECK INJURY
     Dosage: 800 MG, BID
     Dates: start: 20061101, end: 20060101
  2. UNSPECIFIED PAIN MEDICATION [Concomitant]
     Dosage: UNK, UNK

REACTIONS (14)
  - ANOREXIA [None]
  - BREAST PAIN [None]
  - BURNING SENSATION [None]
  - CARDIAC DISORDER [None]
  - CONDITION AGGRAVATED [None]
  - CONSTIPATION [None]
  - MUSCLE SPASMS [None]
  - MUSCULAR WEAKNESS [None]
  - OEDEMA PERIPHERAL [None]
  - PAIN IN EXTREMITY [None]
  - SKIN DISCOLOURATION [None]
  - SKIN EXFOLIATION [None]
  - WEIGHT DECREASED [None]
  - WOUND [None]
